FAERS Safety Report 8176403-9 (Version None)
Quarter: 2012Q1

REPORT INFORMATION
  Report Type: 
  Country: None (occurrence: None)
  Receive Date: 20120301
  Receipt Date: 20120223
  Transmission Date: 20120608
  Serious: Yes (Death, Life-Threatening, Hospitalization)
  Sender: FDA-Public Use
  Company Number: FR-ASTELLAS-2012US002267

PATIENT
  Age: 60 Year
  Sex: Male

DRUGS (2)
  1. TIORFAN [Suspect]
     Indication: PRODUCT USED FOR UNKNOWN INDICATION
     Dosage: UNK
     Route: 048
  2. TARCEVA [Suspect]
     Indication: PRODUCT USED FOR UNKNOWN INDICATION
     Dosage: 150 MG, UID/QD
     Route: 048
     Dates: start: 20120112, end: 20120131

REACTIONS (5)
  - MEGACOLON [None]
  - LARGE INTESTINE PERFORATION [None]
  - SEPSIS [None]
  - INTESTINAL OBSTRUCTION [None]
  - PNEUMONIA [None]
